FAERS Safety Report 9403501 (Version 1)
Quarter: 2013Q3

REPORT INFORMATION
  Report Type: Spontaneous
  Country: US (occurrence: US)
  Receive Date: 20130716
  Receipt Date: 20130716
  Transmission Date: 20140515
  Serious: No
  Sender: FDA-Public Use
  Company Number: US-009507513-1307USA007746

PATIENT
  Sex: Female
  Weight: 62.59 kg

DRUGS (2)
  1. NUVARING [Suspect]
     Indication: CONTRACEPTION
     Dosage: 3WEEKS IN 1WEEK RING FREE
     Route: 067
     Dates: start: 2010
  2. VITAMINS (UNSPECIFIED) [Concomitant]

REACTIONS (4)
  - Device expulsion [Unknown]
  - Device expulsion [Not Recovered/Not Resolved]
  - Vulvovaginal discomfort [Unknown]
  - Vulvovaginal discomfort [Not Recovered/Not Resolved]
